FAERS Safety Report 4449391-6 (Version None)
Quarter: 2004Q3

REPORT INFORMATION
  Report Type: 
  Country: None (occurrence: None)
  Receive Date: 20040909
  Receipt Date: 20040824
  Transmission Date: 20050211
  Serious: Yes (Other)
  Sender: FDA-Public Use
  Company Number: B0343311A

PATIENT
  Sex: 0

DRUGS (2)
  1. ALBENZA [Suspect]
     Dosage: 400 MG / TWICE PER DAY
  2. PRAZIQUANTEL [Concomitant]

REACTIONS (1)
  - GASTROINTESTINAL DISORDER [None]
